FAERS Safety Report 6673617-1 (Version None)
Quarter: 2010Q1

REPORT INFORMATION
  Report Type: 
  Country: None (occurrence: None)
  Receive Date: 20100329
  Receipt Date: 20091015
  Transmission Date: 20100710
  Serious: Yes (Other)
  Sender: FDA-Public Use
  Company Number: 2009285317

PATIENT
  Age: 25 Year
  Sex: Male

DRUGS (3)
  1. GEODON [Suspect]
     Indication: SCHIZOPHRENIA
     Dates: start: 20030101
  2. LAMICTAL [Concomitant]
  3. COGENTIN [Concomitant]

REACTIONS (1)
  - TARDIVE DYSKINESIA [None]
